FAERS Safety Report 10341129 (Version 6)
Quarter: 2014Q4

REPORT INFORMATION
  Report Type: Spontaneous
  Country: US (occurrence: US)
  Receive Date: 20140724
  Receipt Date: 20141010
  Transmission Date: 20150528
  Serious: Yes (Hospitalization)
  Sender: FDA-Public Use
  Company Number: US-ACTELION-A-NJ2014-102108

PATIENT
  Age: 73 Year
  Sex: Male

DRUGS (4)
  1. XARELTO [Suspect]
     Active Substance: RIVAROXABAN
     Indication: PRODUCT USED FOR UNKNOWN INDICATION
     Dosage: UNK
     Route: 048
     Dates: start: 201407, end: 201409
  2. VALCHLOR [Suspect]
     Active Substance: MECHLORETHAMINE
     Indication: MYCOSIS FUNGOIDES
     Dosage: UNK, QD
     Route: 061
     Dates: start: 20140514
  3. WARFARIN [Concomitant]
     Active Substance: WARFARIN
  4. AQUAPHOR [Concomitant]
     Active Substance: PETROLATUM

REACTIONS (8)
  - Sepsis [Recovering/Resolving]
  - Blood count abnormal [Recovering/Resolving]
  - Blood viscosity decreased [Unknown]
  - Hypotension [Recovering/Resolving]
  - Epistaxis [Recovered/Resolved]
  - Infection [Unknown]
  - Diabetic complication [Unknown]
  - Drug dose omission [Recovering/Resolving]
